FAERS Safety Report 24235112 (Version 1)
Quarter: 2024Q3

REPORT INFORMATION
  Report Type: Spontaneous
  Country: FR (occurrence: FR)
  Receive Date: 20240821
  Receipt Date: 20240821
  Transmission Date: 20241016
  Serious: Yes (Hospitalization, Other)
  Sender: pharmaAND
  Company Number: FR-AFSSAPS-PV2024000726

PATIENT
  Age: 29 Year
  Sex: Female

DRUGS (2)
  1. PEGASYS [Suspect]
     Active Substance: PEGINTERFERON ALFA-2A
     Indication: Polycythaemia vera
  2. KARDEGIC 75 mg, powder for oral solution in sachet [Concomitant]
     Indication: Product used for unknown indication

REACTIONS (4)
  - Abortion spontaneous [Recovered/Resolved]
  - Maternal exposure during pregnancy [Recovered/Resolved]
  - Off label use [Recovered/Resolved]
  - Polycythaemia vera [Recovered/Resolved]

NARRATIVE: CASE EVENT DATE: 20230508
